FAERS Safety Report 20778318 (Version 1)
Quarter: 2022Q2

REPORT INFORMATION
  Report Type: Spontaneous
  Country: US (occurrence: None)
  Receive Date: 20220502
  Receipt Date: 20220502
  Transmission Date: 20220721
  Serious: Yes (Hospitalization, Other)
  Sender: FDA-Public Use
  Company Number: None

PATIENT
  Age: 36 Year
  Sex: Female
  Weight: 56.25 kg

DRUGS (1)
  1. EMGALITY [Suspect]
     Active Substance: GALCANEZUMAB-GNLM
     Dates: end: 20211130

REACTIONS (6)
  - Urticaria [None]
  - Drug hypersensitivity [None]
  - Swollen tongue [None]
  - Dyspnoea [None]
  - Musculoskeletal stiffness [None]
  - Rash [None]

NARRATIVE: CASE EVENT DATE: 20210320
